FAERS Safety Report 21593577 (Version 1)
Quarter: 2022Q4

REPORT INFORMATION
  Report Type: Spontaneous
  Country: US (occurrence: US)
  Receive Date: 20221115
  Receipt Date: 20221115
  Transmission Date: 20230113
  Serious: Yes (Other)
  Sender: FDA-Public Use
  Company Number: US-CIPLA LTD.-2022US06588

PATIENT
  Age: 40 Year
  Sex: Female

DRUGS (3)
  1. WARFARIN [Suspect]
     Active Substance: WARFARIN
     Indication: Ischaemia
     Dosage: UNK
     Route: 065
  2. WARFARIN [Suspect]
     Active Substance: WARFARIN
     Indication: Spinal cord infarction
  3. WARFARIN [Suspect]
     Active Substance: WARFARIN
     Indication: Cerebrovascular accident

REACTIONS (3)
  - Treatment failure [Unknown]
  - Intra-abdominal haemorrhage [Unknown]
  - Haematoma muscle [Unknown]
